FAERS Safety Report 8120870-3 (Version None)
Quarter: 2012Q1

REPORT INFORMATION
  Report Type: 
  Country: None (occurrence: None)
  Receive Date: 20120203
  Receipt Date: 20120130
  Transmission Date: 20120608
  Serious: Yes (Death)
  Sender: FDA-Public Use
  Company Number: ADR-2012-00223

PATIENT
  Age: 70 Year
  Sex: Female

DRUGS (1)
  1. LIORESAL [Suspect]
     Indication: MUSCLE SPASTICITY
     Dosage: 24.99 MCG/DAY

REACTIONS (3)
  - PRODUCT CONTAMINATION [None]
  - NEOPLASM MALIGNANT [None]
  - CEREBROVASCULAR ACCIDENT [None]
